FAERS Safety Report 9846405 (Version 1)
Quarter: 2014Q1

REPORT INFORMATION
  Report Type: Report from Study
  Country: US (occurrence: US)
  Receive Date: 20140127
  Receipt Date: 20140127
  Transmission Date: 20141002
  Serious: Yes (Hospitalization)
  Sender: FDA-Public Use
  Company Number: US-JNJFOC-20140112336

PATIENT
  Sex: Female
  Weight: 96.16 kg

DRUGS (1)
  1. REMICADE [Suspect]
     Indication: RHEUMATOID ARTHRITIS
     Dosage: BEGAN INFLIXIMAB OVER 10 YEARS BEFORE
     Route: 042
     Dates: end: 2013

REACTIONS (4)
  - Rheumatoid arthritis [Recovered/Resolved]
  - Osteoarthritis [Recovered/Resolved]
  - Arterial occlusive disease [Recovered/Resolved]
  - Vasculitis [Unknown]
